FAERS Safety Report 8991970 (Version 1)
Quarter: 2012Q4

REPORT INFORMATION
  Report Type: 
  Country: US (occurrence: US)
  Receive Date: 20121231
  Receipt Date: 20121231
  Transmission Date: 20130627
  Serious: No
  Sender: FDA-Public Use
  Company Number: US-BAYER-2012-136069

PATIENT
  Age: 83 Year
  Sex: Male
  Weight: 68.03 kg

DRUGS (2)
  1. ALEVE CAPLET/TABLET,MIDOL EXTENDED RELIEF CAPLET [Suspect]
     Indication: ARTHRITIS
     Dosage: 1 DF, QD
     Route: 048
     Dates: start: 20121219, end: 20121220
  2. GINKO BILOBA [Concomitant]

REACTIONS (3)
  - Dizziness [Not Recovered/Not Resolved]
  - Drug ineffective [None]
  - Headache [Not Recovered/Not Resolved]
